FAERS Safety Report 18578352 (Version 1)
Quarter: 2020Q4

REPORT INFORMATION
  Report Type: Spontaneous
  Country: US (occurrence: US)
  Receive Date: 20201204
  Receipt Date: 20201204
  Transmission Date: 20210114
  Serious: Yes (Hospitalization, Other)
  Sender: FDA-Public Use
  Company Number: US-SA-2020SA332758

PATIENT

DRUGS (22)
  1. GLUCAGON. [Concomitant]
     Active Substance: GLUCAGON
     Dosage: WEANED OFF AT DAY FOUR
  2. PRAZOSIN. [Concomitant]
     Active Substance: PRAZOSIN
     Dosage: 5 MG, HS
  3. DEXTROSE. [Concomitant]
     Active Substance: DEXTROSE
     Dosage: UNK;D10 IV INFUSION WAS WEANED OFF
     Route: 042
  4. DULOXETINE. [Concomitant]
     Active Substance: DULOXETINE
     Dosage: 120 MG, QD
  5. MIRTAZAPINE. [Concomitant]
     Active Substance: MIRTAZAPINE
     Dosage: 30 MG, HS
  6. HYDROCORTISONE SALT NOT SPECIFIED [Suspect]
     Active Substance: HYDROCORTISONE
     Indication: HYPOGLYCAEMIA
     Dosage: 100 MG
     Route: 040
  7. BUPROPION. [Concomitant]
     Active Substance: BUPROPION
     Dosage: 300 MG, QD
  8. CARBOHYDRATES NOS [Concomitant]
     Indication: HYPOGLYCAEMIA
     Dosage: 56 G, QD
  9. PROTEIN [Concomitant]
     Active Substance: PROTEIN
     Indication: HYPOGLYCAEMIA
     Dosage: 18 G, QD
  10. HYDROCORTISONE SALT NOT SPECIFIED [Suspect]
     Active Substance: HYDROCORTISONE
     Dosage: 100 MG, Q8H
     Route: 042
  11. LITHIUM. [Concomitant]
     Active Substance: LITHIUM
     Dosage: 900 MG, QD
  12. DEXTROSE. [Concomitant]
     Active Substance: DEXTROSE
     Dosage: 50 G;RECEIVED TWO 50-GRAM AMPULES OF DEXTROSE 50% (D50) IV, ALONG WITH THREE 1 MG DOSES OF INTRAMUSC
     Route: 042
  13. HYDROCORTISONE SALT NOT SPECIFIED [Suspect]
     Active Substance: HYDROCORTISONE
     Dosage: UNK, THREE ADDITIONAL DOSES OF HYDROCORTISONE WERE GIVEN ON DAY 3 AND 4
  14. TRAZODONE [Concomitant]
     Active Substance: TRAZODONE HYDROCHLORIDE
     Dosage: 150 MG, HS
  15. GLUCAGON. [Concomitant]
     Active Substance: GLUCAGON
     Dosage: 1 MG; A STANDING ORDER FOR GLUCAGON 1 MG IM
     Route: 030
  16. DEXTROSE. [Concomitant]
     Active Substance: DEXTROSE
     Indication: HYPOGLYCAEMIA
     Dosage: 300 ML, QH10% DEXTROSE (D10) INFUSION
     Route: 042
  17. GLUCAGON. [Concomitant]
     Active Substance: GLUCAGON
     Dosage: 1 MG, QH;AN IV GLUCAGON INFUSION WAS STARTED AT 1 MG/HR ON HOSPITAL DAY TWO (APPROXIMATELY 44 HOURS
     Route: 042
  18. GLUCAGON. [Concomitant]
     Active Substance: GLUCAGON
     Dosage: 4 MG, QH; TITRATION OF THE IV GLUCAGON INFUSION TO 4 MG/HR
     Route: 042
  19. GLUCAGON. [Concomitant]
     Active Substance: GLUCAGON
     Dosage: 1 MG; THREE 1 MG DOSES OF INTRAMUSCULAR (IM) GLUCAGON, OVER THE NEXT FOUR HOURS.
     Route: 030
  20. GLUCAGON. [Concomitant]
     Active Substance: GLUCAGON
     Dosage: 1 UNK;SHE REQUIRED ELEVEN 1 MG IM GLUCAGON DOSES
     Route: 030
  21. GLUCAGON. [Concomitant]
     Active Substance: GLUCAGON
     Dosage: 2 MG, QH;IV GLUCAGON INFUSION WAS TITRATED TO 2 MG/HR AS THE D10 IV INFUSION WAS WEANED OFF, WHICH W
     Route: 042
  22. LANTUS [Concomitant]
     Active Substance: INSULIN GLARGINE
     Indication: INTENTIONAL OVERDOSE
     Dosage: 900 U;900 UNITS OF INSULIN GLARGINE U-100 (LANTUS) SUBCUTANEOUSLY
     Route: 058

REACTIONS (1)
  - Hyperglycaemia [Recovered/Resolved]
